FAERS Safety Report 7432249-8 (Version None)
Quarter: 2011Q2

REPORT INFORMATION
  Report Type: 
  Country: None (occurrence: None)
  Receive Date: 20110419
  Receipt Date: 20110419
  Transmission Date: 20111010
  Serious: Yes (Other)
  Sender: FDA-Public Use
  Company Number: None

PATIENT
  Sex: Male
  Weight: 103.4201 kg

DRUGS (1)
  1. ALCOHOL PREP PAD 70% ISOPROPYL TRIAD [Suspect]
     Indication: STERILISATION
     Dosage: 2 X DAILY OTHER
     Route: 050
     Dates: start: 20110105, end: 20110121

REACTIONS (3)
  - RASH GENERALISED [None]
  - PAIN [None]
  - RASH PRURITIC [None]
